FAERS Safety Report 8396902-4 (Version None)
Quarter: 2012Q2

REPORT INFORMATION
  Report Type: 
  Country: None (occurrence: None)
  Receive Date: 20120530
  Receipt Date: 20120515
  Transmission Date: 20120825
  Serious: No
  Sender: FDA-Public Use
  Company Number: US-ASTRAZENECA-2012SE31073

PATIENT
  Sex: Female

DRUGS (3)
  1. PREVACID [Concomitant]
  2. OMEPRAZOLE [Concomitant]
  3. NEXIUM [Suspect]
     Route: 048

REACTIONS (5)
  - CONSTIPATION [None]
  - GLOSSODYNIA [None]
  - DYSGEUSIA [None]
  - SALIVARY HYPERSECRETION [None]
  - APHAGIA [None]
